FAERS Safety Report 8826349 (Version 1)
Quarter: 2012Q4

REPORT INFORMATION
  Report Type: 
  Country: US (occurrence: US)
  Receive Date: 20121008
  Receipt Date: 20121008
  Transmission Date: 20130627
  Serious: No
  Sender: FDA-Public Use
  Company Number: US-PFIZER INC-2012245434

PATIENT
  Sex: Female

DRUGS (1)
  1. IBUPROFEN [Suspect]
     Indication: NECK PAIN
     Dosage: 200 mg, UNK
     Route: 048

REACTIONS (2)
  - Overdose [Unknown]
  - Menstruation irregular [Unknown]
